FAERS Safety Report 24399849 (Version 1)
Quarter: 2024Q4

REPORT INFORMATION
  Report Type: Spontaneous
  Country: GB (occurrence: GB)
  Receive Date: 20241005
  Receipt Date: 20241005
  Transmission Date: 20250115
  Serious: Yes (Other)
  Sender: TEVA
  Company Number: GB-MHRA-TPP37298757C3543119YC1727262863937

PATIENT
  Age: 73 Year
  Sex: Female
  Weight: 70 kg

DRUGS (10)
  1. ROSUVASTATIN [Suspect]
     Active Substance: ROSUVASTATIN
     Indication: Ill-defined disorder
     Route: 065
     Dates: start: 20210224
  2. POTASSIUM BICARBONATE\SODIUM ALGINATE [Concomitant]
     Active Substance: POTASSIUM BICARBONATE\SODIUM ALGINATE
     Indication: Ill-defined disorder
     Dosage: 5ML - 10ML 4 TIMES/DAY, TPP YC - PLEASE RECLASSIFY
     Route: 065
     Dates: start: 20171031
  3. COCODAMOL [Concomitant]
     Active Substance: ACETAMINOPHEN\CODEINE PHOSPHATE
     Indication: Ill-defined disorder
     Dosage: TAKE 1 OR 2 4 TIMES/DAY, TPP YC - PLEASE RECLASSIFY
     Route: 065
     Dates: start: 20231025
  4. OMEPRAZOLE [Concomitant]
     Active Substance: OMEPRAZOLE
     Indication: Ill-defined disorder
     Dosage: ONE TO BE TAKEN DAILY, TPP YC - PLEASE RECLASSIFY
     Route: 065
     Dates: start: 20080522
  5. CELLUSAN [Concomitant]
     Indication: Ill-defined disorder
     Dosage: 1-2 DROPS QDS BOTH EYES, TPP YC - PLEASE RECLASSIFY
     Route: 065
     Dates: start: 20230628
  6. HYDROCORTISONE [Concomitant]
     Active Substance: HYDROCORTISONE
     Indication: Ill-defined disorder
     Dosage: APPLY TWICE DAILY, TPP YC - PLEASE RECLASSIFY
     Route: 065
     Dates: start: 20240722, end: 20240729
  7. EZETIMIBE [Concomitant]
     Active Substance: EZETIMIBE
     Indication: Ill-defined disorder
     Dosage: TAKE ONE DAILY, TPP YC - PLEASE RECLASSIFY
     Route: 065
  8. LEVOTHYROXINE [Concomitant]
     Active Substance: LEVOTHYROXINE
     Indication: Ill-defined disorder
     Dosage: TAKE ONE EACH MORNING, TPP YC - PLEASE RECLASSIFY
     Route: 065
     Dates: start: 20200630
  9. LATANOPROST [Concomitant]
     Active Substance: LATANOPROST
     Indication: Ill-defined disorder
     Dosage: ONE DROP ONCE AT NIGHT BOTH EYES, TPP YC - PLEASE RECLASSIFY
     Route: 065
     Dates: start: 20230628
  10. FERROUS FUMARATE [Concomitant]
     Active Substance: FERROUS FUMARATE
     Indication: Ill-defined disorder
     Dosage: TIME INTERVAL: 0.33333333 DAYS: TO BE TAKEN THREE TIMES DAILY, TPP YC - PLEASE RECLASSIFY
     Route: 065
     Dates: start: 20210525

REACTIONS (1)
  - Pain in extremity [Recovered/Resolved]
